FAERS Safety Report 20925736 (Version 1)
Quarter: 2022Q2

REPORT INFORMATION
  Report Type: Spontaneous
  Country: US (occurrence: US)
  Receive Date: 20220607
  Receipt Date: 20220607
  Transmission Date: 20220721
  Serious: No
  Sender: FDA-Public Use
  Company Number: US-PERRIGO-21US007825

PATIENT
  Sex: Female
  Weight: 54.422 kg

DRUGS (3)
  1. MINOXIDIL [Suspect]
     Active Substance: MINOXIDIL
     Indication: Alopecia
     Dosage: 1 CAPFUL, QD
     Route: 061
     Dates: start: 2019, end: 2019
  2. MINOXIDIL [Suspect]
     Active Substance: MINOXIDIL
     Dosage: 1 CAPFUL, BID
     Route: 061
     Dates: start: 2021, end: 2021
  3. MINOXIDIL [Suspect]
     Active Substance: MINOXIDIL
     Dosage: 1 CAPFUL, QD
     Route: 061
     Dates: start: 2021

REACTIONS (2)
  - Overdose [Not Recovered/Not Resolved]
  - Drug ineffective [Unknown]

NARRATIVE: CASE EVENT DATE: 20190101
